FAERS Safety Report 8134129-1 (Version None)
Quarter: 2012Q1

REPORT INFORMATION
  Report Type: 
  Country: None (occurrence: None)
  Receive Date: 20120208
  Receipt Date: 20120130
  Transmission Date: 20120608
  Serious: Yes (Other)
  Sender: FDA-Public Use
  Company Number: 1179730

PATIENT
  Age: 15 Year
  Sex: Female
  Weight: 52.4 kg

DRUGS (18)
  1. VITAMIN E /00110501/) [Concomitant]
  2. URSODIOL [Concomitant]
  3. ALBUTEROL SULFATE AUTOHALER [Concomitant]
  4. (COLOMYCIN /00013203/) [Concomitant]
  5. VITAMIN C /00008001/) [Concomitant]
  6. (MENADIOL) [Concomitant]
  7. ACETYLCYSTEINE [Concomitant]
  8. MULTI-VITAMINS [Concomitant]
  9. OMEPRAZOLE [Concomitant]
  10. (MOVICOL /01625101/) [Concomitant]
  11. VITAMIN B COMPLEX /00003501/) [Concomitant]
  12. VITAMIN K TAB [Concomitant]
  13. SENOKOT [Concomitant]
  14. MEROPENEM [Suspect]
     Indication: CYSTIC FIBROSIS
     Dosage: INTRAVENOUS (NOT OTHERWISE SPECIFIED)
     Route: 042
     Dates: start: 20111207, end: 20111227
  15. CREON [Concomitant]
  16. (DEOXYRIBONUCLEASE HUMAN) [Concomitant]
  17. (VITAMIN A /00056001/) [Concomitant]
  18. TOBRAMYCIN [Suspect]
     Indication: CYSTIC FIBROSIS
     Dosage: INTRAVENOUS (NOT OTHERWISE SPECIFIED)
     Route: 042
     Dates: start: 20111207, end: 20111227

REACTIONS (2)
  - DECREASED APPETITE [None]
  - AGEUSIA [None]
